FAERS Safety Report 7052085-4 (Version None)
Quarter: 2010Q4

REPORT INFORMATION
  Report Type: 
  Country: None (occurrence: None)
  Receive Date: 20101019
  Receipt Date: 20101011
  Transmission Date: 20110411
  Serious: Yes (Other)
  Sender: FDA-Public Use
  Company Number: US-US-EMD SERONO, INC.-7010985

PATIENT
  Sex: Male

DRUGS (3)
  1. REBIF [Suspect]
     Indication: RELAPSING-REMITTING MULTIPLE SCLEROSIS
     Route: 058
     Dates: start: 20070606, end: 20080713
  2. REBIF [Suspect]
     Route: 058
     Dates: start: 20100722, end: 20100101
  3. REBIF [Suspect]
     Route: 058
     Dates: start: 20100101

REACTIONS (4)
  - DEPRESSION [None]
  - MUSCLE SPASMS [None]
  - SCHIZOAFFECTIVE DISORDER BIPOLAR TYPE [None]
  - VISUAL IMPAIRMENT [None]
